FAERS Safety Report 8244131-7 (Version None)
Quarter: 2012Q1

REPORT INFORMATION
  Report Type: 
  Country: None (occurrence: None)
  Receive Date: 20120329
  Receipt Date: 20120323
  Transmission Date: 20120608
  Serious: Yes (Life-Threatening, Hospitalization, Other)
  Sender: FDA-Public Use
  Company Number: NL-PFIZER INC-2012076649

PATIENT
  Age: 58 Year
  Sex: Male

DRUGS (2)
  1. DOXYCYCLINE HYCLATE [Suspect]
     Indication: RESPIRATORY TRACT INFECTION
     Dosage: 100 MG, UNK
     Dates: start: 20111230, end: 20120112
  2. GALANTAMINE HYDROBROMIDE [Suspect]
     Indication: DEMENTIA ALZHEIMER'S TYPE
     Dosage: 16 MG, UNK
     Dates: start: 20100304, end: 20120112

REACTIONS (2)
  - INFARCTION [None]
  - DRUG INTERACTION [None]
